FAERS Safety Report 8986043 (Version 2)
Quarter: 2013Q1

REPORT INFORMATION
  Report Type: Spontaneous
  Country: US (occurrence: None)
  Receive Date: 20121214
  Receipt Date: 20130118
  Transmission Date: 20140127
  Serious: Yes (Hospitalization, Other)
  Sender: FDA-Public Use
  Company Number: 2012SP004662

PATIENT
  Age: 82 Year
  Sex: Male

DRUGS (25)
  1. VANCOMYCIN [Suspect]
     Indication: STAPHYLOCOCCAL INFECTION
     Route: 042
     Dates: start: 20120723, end: 20120809
  2. SIPULEUCEL-T [Concomitant]
  3. CASODEX [Concomitant]
  4. LISINOPRIL [Concomitant]
  5. GLIPIZIDE [Concomitant]
  6. PRAVASTATIN SODIUM [Concomitant]
  7. CALCIUM PHOSPHATE [Concomitant]
  8. CALCIUM SODIUM LACTATE [Concomitant]
  9. ERGOCALCIFEROL [Concomitant]
  10. ALEVE [Concomitant]
  11. HYDROCODONE BITARTRATE [Concomitant]
  12. ACETAMINOPHEN [Concomitant]
  13. SILVADENE [Concomitant]
  14. RAPAFLO [Concomitant]
  15. ASCORBIC ACID [Concomitant]
  16. CALCIUM [Concomitant]
  17. MINERALS NOS [Concomitant]
  18. RETINOL [Concomitant]
  19. TOCOPHERYL ACETATE [Concomitant]
  20. VITAMIN B NOS [Concomitant]
  21. VITAMINS NOS [Concomitant]
  22. ZINC [Concomitant]
  23. DOCUSATE SODIUM [Concomitant]
  24. XGEVA [Concomitant]
  25. PIPERACILLIN/TAZOBACTAM [Concomitant]

REACTIONS (22)
  - Colonic pseudo-obstruction [None]
  - Renal failure acute [None]
  - Hypernatraemia [None]
  - Acute prerenal failure [None]
  - Nephropathy toxic [None]
  - Cardio-respiratory arrest [None]
  - Prostate cancer metastatic [None]
  - Malignant neoplasm progression [None]
  - Pneumonia [None]
  - Hyponatraemia [None]
  - Hypokalaemia [None]
  - Diverticulum intestinal [None]
  - Haemoglobin decreased [None]
  - Platelet count decreased [None]
  - Blood glucose increased [None]
  - Sinus tachycardia [None]
  - Bundle branch block right [None]
  - Supraventricular extrasystoles [None]
  - Acquired diaphragmatic eventration [None]
  - Pleural effusion [None]
  - Left ventricular hypertrophy [None]
  - Ileus [None]
